FAERS Safety Report 4637007-5 (Version None)
Quarter: 2005Q2

REPORT INFORMATION
  Report Type: 
  Country: None (occurrence: None)
  Receive Date: 20050415
  Receipt Date: 20050411
  Transmission Date: 20051028
  Serious: Yes (Other)
  Sender: FDA-Public Use
  Company Number: 004595

PATIENT
  Age: 58 Year
  Sex: Female

DRUGS (4)
  1. MEDROXYPROGESTERONE ACETATE [Suspect]
     Dosage: ORAL
     Route: 048
     Dates: start: 19900101, end: 19950907
  2. PROVERA [Suspect]
     Dosage: ORAL
     Route: 048
     Dates: start: 19900101, end: 19950907
  3. OGEN [Suspect]
     Dosage: ORAL
     Route: 048
     Dates: start: 19900101, end: 19951007
  4. MEDROXYPROGESTERONE ACETATE [Suspect]
     Dates: start: 19960216, end: 20040301

REACTIONS (1)
  - BREAST CANCER [None]
